FAERS Safety Report 10300983 (Version 2)
Quarter: 2014Q3

REPORT INFORMATION
  Report Type: Spontaneous
  Country: US (occurrence: US)
  Receive Date: 20140714
  Receipt Date: 20140805
  Transmission Date: 20150326
  Serious: Yes (Other)
  Sender: FDA-Public Use
  Company Number: US-PFIZER INC-2014191972

PATIENT
  Age: 55 Year
  Sex: Female

DRUGS (7)
  1. NAMENDA [Concomitant]
     Active Substance: MEMANTINE HYDROCHLORIDE
     Dosage: 10 MG, 2X/DAY
     Route: 048
  2. CALCIUM WITH VITAMIN D [Concomitant]
     Active Substance: CALCIUM\VITAMIN D
     Dosage: UNK
  3. HALCION [Concomitant]
     Active Substance: TRIAZOLAM
     Indication: SLEEP DISORDER
     Dosage: UNK, (Q.H.S. P.R.N.)
  4. TESSALON [Concomitant]
     Active Substance: BENZONATATE
     Indication: COUGH
     Dosage: 1 DF, 3X/DAY
     Route: 048
  5. XALKORI [Suspect]
     Active Substance: CRIZOTINIB
     Indication: NON-SMALL CELL LUNG CANCER STAGE IV
     Dosage: 250 MG, 2X/DAY
     Route: 048
     Dates: start: 20140620
  6. OXYCODONE [Concomitant]
     Active Substance: OXYCODONE
     Dosage: UNK, (1/2 TABLET SPRINGLY)
  7. XALKORI [Suspect]
     Active Substance: CRIZOTINIB
     Dosage: 250 MG, DAILY
     Route: 048
     Dates: start: 201407

REACTIONS (13)
  - Somnolence [Recovered/Resolved]
  - Asthenia [Unknown]
  - Gait disturbance [Unknown]
  - General physical health deterioration [Recovering/Resolving]
  - Dizziness [Unknown]
  - Lethargy [Recovering/Resolving]
  - Oesophageal food impaction [Unknown]
  - Balance disorder [Unknown]
  - Decreased appetite [Recovering/Resolving]
  - Off label use [Unknown]
  - Alopecia [Unknown]
  - Blood glucose increased [Unknown]
  - Fatigue [Unknown]

NARRATIVE: CASE EVENT DATE: 20140626
